FAERS Safety Report 16615176 (Version 1)
Quarter: 2019Q3

REPORT INFORMATION
  Report Type: Spontaneous
  Country: US (occurrence: US)
  Receive Date: 20190723
  Receipt Date: 20190723
  Transmission Date: 20191004
  Serious: Yes (Other)
  Sender: FDA-Public Use
  Company Number: US-ROCHE-2357882

PATIENT
  Age: 69 Year
  Sex: Male
  Weight: 86.26 kg

DRUGS (9)
  1. AVASTIN [Suspect]
     Active Substance: BEVACIZUMAB
     Indication: OFF LABEL USE
  2. ANTIHYPERTENSIVES [Concomitant]
     Active Substance: UNSPECIFIED INGREDIENT
     Indication: OFF LABEL USE
  3. TIMOLOL. [Concomitant]
     Active Substance: TIMOLOL
     Indication: OFF LABEL USE
     Dosage: TAKES TWICE A DAY ;ONGOING: YES
     Route: 031
  4. LATANOPROST. [Concomitant]
     Active Substance: LATANOPROST
     Indication: OFF LABEL USE
  5. ANTIHYPERTENSIVES [Concomitant]
     Active Substance: UNSPECIFIED INGREDIENT
     Indication: HYPERTENSION
     Dosage: ONGOING YES
     Route: 065
  6. LATANOPROST. [Concomitant]
     Active Substance: LATANOPROST
     Indication: HEADACHE
     Dosage: ONGOING YES
     Route: 031
     Dates: start: 20190707
  7. AVASTIN [Suspect]
     Active Substance: BEVACIZUMAB
     Indication: OCULAR VASCULAR DISORDER
     Route: 050
     Dates: start: 20190702
  8. ACETAZOLAMIDE. [Concomitant]
     Active Substance: ACETAZOLAMIDE
     Indication: OFF LABEL USE
     Dosage: ONGOING YES
     Route: 048
     Dates: start: 20190705
  9. DORZOLAMIDE HCL [Concomitant]
     Active Substance: DORZOLAMIDE HYDROCHLORIDE
     Indication: OFF LABEL USE
     Dosage: TAKES TWICE A DAY ;ONGOING: YES
     Route: 031
     Dates: start: 20190705

REACTIONS (8)
  - Intentional product use issue [Unknown]
  - Headache [Recovered/Resolved]
  - Hypoaesthesia [Unknown]
  - Off label use [Unknown]
  - Hypertension [Recovered/Resolved]
  - Carotid artery occlusion [Not Recovered/Not Resolved]
  - Intraocular pressure increased [Unknown]
  - Collateral circulation [Unknown]

NARRATIVE: CASE EVENT DATE: 20190703
